FAERS Safety Report 7542803-0 (Version None)
Quarter: 2011Q2

REPORT INFORMATION
  Report Type: 
  Country: None (occurrence: None)
  Receive Date: 20110524
  Receipt Date: 20110207
  Transmission Date: 20111010
  Serious: No
  Sender: FDA-Public Use
  Company Number: 025126

PATIENT
  Sex: Male
  Weight: 68 kg

DRUGS (8)
  1. CIMZIA [Suspect]
  2. VITAMIN B12 NOS [Concomitant]
  3. TOPROL-XL [Concomitant]
  4. FOLIC ACID [Concomitant]
  5. DAILY VITAMINS [Concomitant]
  6. FERROUS SULFATE TAB [Concomitant]
  7. CIMZIA [Suspect]
     Indication: CROHN'S DISEASE
     Dosage: (TWO VIALS SUBCUTANEOUS), (1 VIAL SUBCUTANEOUS), (SUBCUTANEOUS)
     Route: 058
     Dates: start: 20101201
  8. CIMZIA [Suspect]
     Indication: CROHN'S DISEASE
     Dosage: (TWO VIALS SUBCUTANEOUS), (1 VIAL SUBCUTANEOUS), (SUBCUTANEOUS)
     Route: 058
     Dates: start: 20100714, end: 20101101

REACTIONS (5)
  - FATIGUE [None]
  - DRUG INEFFECTIVE [None]
  - BOWEL MOVEMENT IRREGULARITY [None]
  - ABDOMINAL PAIN [None]
  - FREQUENT BOWEL MOVEMENTS [None]
